FAERS Safety Report 6005738-0 (Version None)
Quarter: 2008Q4

REPORT INFORMATION
  Report Type: 
  Country: None (occurrence: None)
  Receive Date: 20081217
  Receipt Date: 20081201
  Transmission Date: 20090506
  Serious: No
  Sender: FDA-Public Use
  Company Number: US-BAYER-200839974NA

PATIENT
  Age: 44 Year
  Sex: Female
  Weight: 61 kg

DRUGS (2)
  1. YAZ [Suspect]
     Indication: CONTRACEPTION
     Route: 048
     Dates: start: 20070101, end: 20081101
  2. YASMIN [Suspect]
     Indication: CONTRACEPTION
     Route: 048
     Dates: start: 20060101, end: 20070101

REACTIONS (3)
  - ABDOMINAL DISCOMFORT [None]
  - ABDOMINAL PAIN [None]
  - DIARRHOEA [None]
